FAERS Safety Report 20952010 (Version 1)
Quarter: 2022Q2

REPORT INFORMATION
  Report Type: Spontaneous
  Country: SI (occurrence: SI)
  Receive Date: 20220613
  Receipt Date: 20220613
  Transmission Date: 20220721
  Serious: Yes (Other)
  Sender: FDA-Public Use
  Company Number: SI-OTSUKA-2022_030907

PATIENT
  Age: 45 Year
  Sex: Male

DRUGS (1)
  1. TOLVAPTAN [Suspect]
     Active Substance: TOLVAPTAN
     Indication: Congenital cystic kidney disease
     Dosage: UNK
     Route: 065

REACTIONS (7)
  - Acute kidney injury [Unknown]
  - Blood sodium increased [Unknown]
  - Dry mouth [Unknown]
  - Nocturia [Unknown]
  - Thirst [Unknown]
  - Polyuria [Unknown]
  - Pollakiuria [Unknown]
